FAERS Safety Report 7179936-7 (Version None)
Quarter: 2010Q4

REPORT INFORMATION
  Report Type: 
  Country: None (occurrence: None)
  Receive Date: 20101208
  Receipt Date: 20101119
  Transmission Date: 20110411
  Serious: Yes (Other)
  Sender: FDA-Public Use
  Company Number: JPI-P-008431

PATIENT
  Sex: Female

DRUGS (1)
  1. XYREM [Suspect]
     Indication: DRUG EXPOSURE DURING PREGNANCY
     Dosage: I.U.
     Dates: start: 20080701

REACTIONS (3)
  - ABORTION SPONTANEOUS [None]
  - PATERNAL DRUGS AFFECTING FOETUS [None]
  - PREGNANCY OF PARTNER [None]
